FAERS Safety Report 8241478-5 (Version None)
Quarter: 2012Q1

REPORT INFORMATION
  Report Type: 
  Country: None (occurrence: None)
  Receive Date: 20120314
  Receipt Date: 20100624
  Transmission Date: 20120608
  Serious: No
  Sender: FDA-Public Use
  Company Number: PHHY2010US41956

PATIENT
  Age: 41 Year
  Sex: Female

DRUGS (2)
  1. FANAPT [Suspect]
     Dosage: 6 MG, BID, ORAL ; 6 MG, QD, ORAL
     Route: 048
  2. RISPERIDONE [Concomitant]

REACTIONS (1)
  - ANXIETY [None]
